FAERS Safety Report 8054084-2 (Version None)
Quarter: 2012Q1

REPORT INFORMATION
  Report Type: 
  Country: None (occurrence: None)
  Receive Date: 20120118
  Receipt Date: 20120109
  Transmission Date: 20120608
  Serious: Yes (Other)
  Sender: FDA-Public Use
  Company Number: US-TEVA-317131USA

PATIENT
  Sex: Female
  Weight: 63.56 kg

DRUGS (7)
  1. CLONIDINE [Concomitant]
     Indication: HYPERTENSION
     Dosage: .2 MILLIGRAM;
  2. IBUPROFEN [Concomitant]
     Indication: PAIN
     Dosage: 2400 ;
  3. DYAZIDE [Concomitant]
     Indication: BLOOD PRESSURE
     Dosage: 37.5/25
  4. FENTORA [Suspect]
     Indication: BREAKTHROUGH PAIN
     Dosage: 1600 MICROGRAM;
     Route: 002
     Dates: start: 20110901
  5. VICODIN [Concomitant]
     Indication: PAIN
     Dosage: 10-325 MG
  6. GABAPENTIN [Concomitant]
     Dosage: 600 MILLIGRAM;
  7. LEVOTHYROXINE SODIUM [Concomitant]
     Indication: THYROID DISORDER

REACTIONS (5)
  - RESTLESSNESS [None]
  - WITHDRAWAL SYNDROME [None]
  - FEELING JITTERY [None]
  - FEELING ABNORMAL [None]
  - FORMICATION [None]
